FAERS Safety Report 9012945 (Version 7)
Quarter: 2015Q1

REPORT INFORMATION
  Report Type: Spontaneous
  Country: US (occurrence: US)
  Receive Date: 20130114
  Receipt Date: 20150127
  Transmission Date: 20150721
  Serious: Yes (Death, Hospitalization, Other)
  Sender: FDA-Public Use
  Company Number: US-GLAXOSMITHKLINE-A1008192A

PATIENT
  Age: 48 Year
  Sex: Female

DRUGS (7)
  1. FLOLAN [Suspect]
     Active Substance: EPOPROSTENOL SODIUM
     Dates: start: 19991025
  2. FLOLAN [Suspect]
     Active Substance: EPOPROSTENOL SODIUM
     Dosage: UNK
     Dates: start: 19991025
  3. VIAGRA [Concomitant]
     Active Substance: SILDENAFIL CITRATE
  4. COUMADIN [Concomitant]
     Active Substance: WARFARIN SODIUM
  5. FLOLAN [Suspect]
     Active Substance: EPOPROSTENOL SODIUM
     Dates: start: 19991025
  6. FLOLAN [Suspect]
     Active Substance: EPOPROSTENOL SODIUM
     Indication: PULMONARY ARTERIAL HYPERTENSION
     Dosage: 16.6 NG/KG/MINUTE CONTINUOUSLY21 NG/KG/MIN, CONC. 30,000 NG/ML, VIAL STRENGTH 1.5 MG
     Route: 042
     Dates: start: 19991025
  7. FLOLAN [Suspect]
     Active Substance: EPOPROSTENOL SODIUM
     Dosage: 23 NG/KG/MIN CONTINUOUS

REACTIONS (9)
  - Catheter site discharge [Recovered/Resolved]
  - Weight decreased [Unknown]
  - Headache [Unknown]
  - Catheter site infection [Unknown]
  - Medical device complication [Unknown]
  - Malaise [Unknown]
  - Catheter site inflammation [Not Recovered/Not Resolved]
  - Death [Fatal]
  - Fluid retention [Unknown]

NARRATIVE: CASE EVENT DATE: 201408
